FAERS Safety Report 16344230 (Version 1)
Quarter: 2019Q2

REPORT INFORMATION
  Report Type: Spontaneous
  Country: US (occurrence: US)
  Receive Date: 20190522
  Receipt Date: 20190522
  Transmission Date: 20190711
  Serious: Yes (Other)
  Sender: FDA-Public Use
  Company Number: US-MYLANLABS-2019M1048053

PATIENT
  Age: 67 Year
  Sex: Female

DRUGS (5)
  1. IRINOTECAN [Interacting]
     Active Substance: IRINOTECAN
     Indication: ADENOCARCINOMA PANCREAS
     Dosage: OCCURRENCE AT 2ND INFUSION
     Route: 041
  2. FLUOROURACIL. [Suspect]
     Active Substance: FLUOROURACIL
     Indication: ADENOCARCINOMA PANCREAS
     Dosage: PLANNED FOR 15 MIN
     Route: 050
  3. CALCIUM FOLINATE [Suspect]
     Active Substance: LEUCOVORIN CALCIUM
     Indication: ADENOCARCINOMA PANCREAS
     Dosage: 400 MILLIGRAM/SQ. METER
     Route: 050
  4. FLUOROURACIL. [Suspect]
     Active Substance: FLUOROURACIL
     Dosage: CONTINUOUS; PLANNED FOR 46 HOURS
     Route: 050
  5. OXALIPLATIN. [Suspect]
     Active Substance: OXALIPLATIN
     Indication: ADENOCARCINOMA PANCREAS
     Dosage: THERAPY ADMINISTERED FOR 2 HOURS BEFORE IRINOTECAN
     Route: 065

REACTIONS (5)
  - Neuropathy peripheral [Unknown]
  - Dysarthria [Unknown]
  - Fatigue [Unknown]
  - Nausea [Unknown]
  - Drug interaction [Unknown]
